FAERS Safety Report 20847547 (Version 1)
Quarter: 2022Q2

REPORT INFORMATION
  Report Type: Report from Study
  Country: CO (occurrence: CO)
  Receive Date: 20220519
  Receipt Date: 20220519
  Transmission Date: 20220720
  Serious: Yes (Other)
  Sender: FDA-Public Use
  Company Number: CO-ABBVIE-21K-036-3791872-00

PATIENT
  Age: 35 Year
  Sex: Female
  Weight: 59 kg

DRUGS (2)
  1. ZEMPLAR [Suspect]
     Active Substance: PARICALCITOL
     Indication: Hyperparathyroidism secondary
     Dosage: POST DIALYSIS
     Route: 042
     Dates: start: 20201008, end: 20201209
  2. ZEMPLAR [Suspect]
     Active Substance: PARICALCITOL
     Indication: Chronic kidney disease
     Route: 042
     Dates: end: 20220219

REACTIONS (2)
  - Vision blurred [Not Recovered/Not Resolved]
  - Blood phosphorus abnormal [Not Recovered/Not Resolved]

NARRATIVE: CASE EVENT DATE: 20201008
